APPROVED DRUG PRODUCT: SODIUM BUTABARBITAL
Active Ingredient: BUTABARBITAL SODIUM
Strength: 16.2MG
Dosage Form/Route: TABLET;ORAL
Application: A083524 | Product #001
Applicant: MARSHALL PHARMACAL CORP
Approved: Approved Prior to Jan 1, 1982 | RLD: No | RS: No | Type: DISCN